FAERS Safety Report 17746188 (Version 1)
Quarter: 2020Q2

REPORT INFORMATION
  Report Type: Spontaneous
  Country: AT (occurrence: AT)
  Receive Date: 20200505
  Receipt Date: 20200505
  Transmission Date: 20200714
  Serious: Yes (Other)
  Sender: FDA-Public Use
  Company Number: AT-PFIZER INC-2020174950

PATIENT
  Age: 71 Year
  Sex: Male

DRUGS (7)
  1. PANTOPRAZOLE [Suspect]
     Active Substance: PANTOPRAZOLE
     Dosage: UNK
     Route: 065
  2. METFORMIN HCL [Suspect]
     Active Substance: METFORMIN HYDROCHLORIDE
     Dosage: UNK
     Route: 065
  3. ALLOPURINOL. [Suspect]
     Active Substance: ALLOPURINOL
     Dosage: UNK
     Route: 065
  4. CANAGLIFLOZIN [Suspect]
     Active Substance: CANAGLIFLOZIN
     Dosage: UNK
     Route: 065
  5. LIRAGLUTIDE [Suspect]
     Active Substance: LIRAGLUTIDE
     Dosage: UNK
     Route: 065
  6. ENALAPRIL [Suspect]
     Active Substance: ENALAPRIL
     Dosage: UNK
     Route: 065
  7. TORASEMID [Suspect]
     Active Substance: TORSEMIDE
     Dosage: UNK
     Route: 065

REACTIONS (1)
  - Acute kidney injury [Unknown]
